FAERS Safety Report 6357457-9 (Version None)
Quarter: 2009Q3

REPORT INFORMATION
  Report Type: 
  Country: None (occurrence: None)
  Receive Date: 20090916
  Receipt Date: 20090908
  Transmission Date: 20100115
  Serious: Yes (Hospitalization)
  Sender: FDA-Public Use
  Company Number: FR-JNJFOC-20090407050

PATIENT
  Sex: Female

DRUGS (3)
  1. RISPERDAL CONSTA [Suspect]
     Indication: PSYCHOTIC DISORDER
     Route: 030
  2. LOXAPAC [Suspect]
     Indication: PSYCHOTIC DISORDER
     Route: 048
  3. LEVOMEPROMAZINE [Suspect]
     Indication: PSYCHOTIC DISORDER
     Route: 048

REACTIONS (4)
  - COMPARTMENT SYNDROME [None]
  - FALL [None]
  - RENAL FAILURE [None]
  - RHABDOMYOLYSIS [None]
